FAERS Safety Report 7594910-4 (Version None)
Quarter: 2011Q3

REPORT INFORMATION
  Report Type: 
  Country: None (occurrence: None)
  Receive Date: 20110707
  Receipt Date: 20110627
  Transmission Date: 20111222
  Serious: Yes (Hospitalization)
  Sender: FDA-Public Use
  Company Number: NO-SANOFI-AVENTIS-2011SA040630

PATIENT
  Age: 64 Year
  Sex: Female

DRUGS (4)
  1. MULTAQ [Suspect]
     Route: 048
     Dates: end: 20110603
  2. WARFARIN SODIUM [Interacting]
     Indication: ATRIAL FIBRILLATION
     Route: 048
  3. SIMVASTATIN [Concomitant]
     Indication: HYPERCHOLESTEROLAEMIA
     Route: 048
  4. METOPROLOL TARTRATE [Concomitant]
     Route: 048

REACTIONS (3)
  - DRUG INTERACTION [None]
  - DRUG EFFECT DECREASED [None]
  - CEREBRAL INFARCTION [None]
